FAERS Safety Report 8517724-7 (Version None)
Quarter: 2012Q3

REPORT INFORMATION
  Report Type: 
  Country: None (occurrence: None)
  Receive Date: 20120718
  Receipt Date: 20120712
  Transmission Date: 20120928
  Serious: Yes (Hospitalization)
  Sender: FDA-Public Use
  Company Number: US-CELGENEUS-163-21880-12061810

PATIENT
  Sex: Female
  Weight: 66.7 kg

DRUGS (22)
  1. MEDICATION [Concomitant]
     Route: 065
  2. CALCIUM 500 + VITAMIN D [Concomitant]
     Dosage: 2 TABLET
     Route: 065
  3. MULTI-VITAMINS [Concomitant]
     Route: 065
  4. ASCORBIC ACID [Concomitant]
     Dosage: 1 GRAM
     Route: 065
  5. ASPIRIN [Concomitant]
     Dosage: 81 MILLIGRAM
     Route: 065
  6. SPIRIVA [Concomitant]
     Route: 055
  7. POTASSIUM CHLORIDE [Concomitant]
     Dosage: 20 MILLIEQUIVALENTS
     Route: 065
  8. NORVASC [Concomitant]
     Route: 065
  9. VITAMIN-MINERAL COMPOUND TAB [Concomitant]
     Route: 065
  10. SYNTHROID [Concomitant]
     Dosage: 75 MICROGRAM
     Route: 065
  11. LUTEIN [Concomitant]
     Route: 065
  12. VITAMIN D [Concomitant]
     Dosage: 1000 IU (INTERNATIONAL UNIT)
     Route: 065
  13. ADVAIR DISKUS 100/50 [Concomitant]
     Dosage: 250/50 MICROGRAM
     Route: 055
  14. FERROUS SULFATE TAB [Concomitant]
     Dosage: 325 MILLIGRAM
     Route: 065
  15. REVLIMID [Suspect]
     Dosage: 5 MILLIGRAM
     Route: 048
     Dates: start: 20111201
  16. BUMEX [Concomitant]
     Dosage: 1 MILLIGRAM
     Route: 065
     Dates: start: 20120609
  17. SIMVASTATIN [Concomitant]
     Dosage: 10 MILLIGRAM
     Route: 065
  18. VITAMIN B-12 [Concomitant]
     Dosage: 100 MICROGRAM
     Route: 065
  19. NORCO [Concomitant]
     Dosage: 5/525
     Route: 065
  20. MIRAPEX [Concomitant]
     Dosage: 37.5 MILLIGRAM
     Route: 065
  21. PROBENECID [Concomitant]
     Dosage: 1000 MILLIGRAM
     Route: 065
  22. DIOVAN [Concomitant]
     Dosage: 80 MILLIGRAM
     Route: 065

REACTIONS (4)
  - PNEUMONIA [None]
  - HAEMOGLOBIN DECREASED [None]
  - SYSTEMIC INFLAMMATORY RESPONSE SYNDROME [None]
  - CHRONIC OBSTRUCTIVE PULMONARY DISEASE [None]
